FAERS Safety Report 20947983 (Version 2)
Quarter: 2022Q3

REPORT INFORMATION
  Report Type: Spontaneous
  Country: US (occurrence: US)
  Receive Date: 20220611
  Receipt Date: 20220715
  Transmission Date: 20221027
  Serious: Yes (Other)
  Sender: FDA-Public Use
  Company Number: US-MYLANLABS-2022M1042030

PATIENT
  Age: 44 Year
  Sex: Female
  Weight: 138 kg

DRUGS (8)
  1. CROMOLYN SODIUM [Suspect]
     Active Substance: CROMOLYN SODIUM
     Indication: Mast cell activation syndrome
     Dosage: UNK,(2 AMPLES 4X^S A DAY), MIXED INTO 8 OZ OF WATER
     Route: 048
     Dates: start: 2019
  2. CROMOLYN SODIUM [Suspect]
     Active Substance: CROMOLYN SODIUM
     Dosage: UNK, IT WAS 3X^S A DAY
     Route: 048
  3. BENADRYL [Concomitant]
     Active Substance: DIPHENHYDRAMINE HYDROCHLORIDE
     Indication: Product used for unknown indication
     Dosage: UNK
     Route: 042
  4. EPIPEN [Concomitant]
     Active Substance: EPINEPHRINE
     Indication: Product used for unknown indication
     Dosage: UNK
     Route: 065
  5. PEPCID [Concomitant]
     Active Substance: FAMOTIDINE
     Dosage: UNK
     Route: 065
  6. TIROSINT [Concomitant]
     Active Substance: LEVOTHYROXINE SODIUM
     Dosage: 50 MILLIGRAM
     Route: 065
  7. LISINOPRIL [Concomitant]
     Active Substance: LISINOPRIL
     Dosage: 10 MILLIGRAM
     Route: 065
  8. CARAFATE [Concomitant]
     Active Substance: SUCRALFATE
     Dosage: UNK
     Route: 065

REACTIONS (12)
  - Foreign body in throat [Unknown]
  - Throat tightness [Unknown]
  - Cough [Unknown]
  - Drug ineffective [Unknown]
  - Wrong dose [Unknown]
  - Hypersensitivity [Unknown]
  - Lip swelling [Unknown]
  - Swelling face [Unknown]
  - Wrong technique in product usage process [Unknown]
  - Urticaria [Unknown]
  - Inappropriate schedule of product administration [Unknown]
  - Flushing [Unknown]

NARRATIVE: CASE EVENT DATE: 20220226
